FAERS Safety Report 23979500 (Version 2)
Quarter: 2024Q3

REPORT INFORMATION
  Report Type: Spontaneous
  Country: US (occurrence: US)
  Receive Date: 20240616
  Receipt Date: 20240725
  Transmission Date: 20241017
  Serious: Yes (Other)
  Sender: JOHNSON AND JOHNSON
  Company Number: US-JNJFOC-20240623433

PATIENT
  Sex: Female

DRUGS (2)
  1. BALVERSA [Suspect]
     Active Substance: ERDAFITINIB
     Indication: Product used for unknown indication
     Dosage: TAKEN 2 TABLETS BY MOUTH EVERY DAY
     Route: 048
     Dates: start: 20240507
  2. BALVERSA [Suspect]
     Active Substance: ERDAFITINIB
     Dosage: TAKEN 2 TABLETS BY MOUTH EVERY DAY
     Route: 048
     Dates: end: 20240515

REACTIONS (5)
  - Maculopathy [Recovering/Resolving]
  - Dry eye [Unknown]
  - Dry mouth [Unknown]
  - Tongue ulceration [Unknown]
  - Diarrhoea [Unknown]
